FAERS Safety Report 21240433 (Version 1)
Quarter: 2022Q3

REPORT INFORMATION
  Report Type: Spontaneous
  Country: AR (occurrence: AR)
  Receive Date: 20220822
  Receipt Date: 20220822
  Transmission Date: 20221027
  Serious: Yes (Other)
  Sender: FDA-Public Use
  Company Number: AR-PFIZER INC-PV202200045052

PATIENT
  Age: 47 Year
  Sex: Female

DRUGS (1)
  1. ENBREL [Suspect]
     Active Substance: ETANERCEPT
     Indication: Product used for unknown indication
     Dosage: UNK
     Route: 065

REACTIONS (12)
  - Rheumatoid factor quantitative increased [Unknown]
  - Blood cholesterol increased [Unknown]
  - Haemoglobin decreased [Unknown]
  - Mean cell volume decreased [Unknown]
  - Mean cell haemoglobin decreased [Unknown]
  - Hypochromasia [Unknown]
  - Neutrophil percentage increased [Unknown]
  - Eosinophil percentage decreased [Unknown]
  - Eosinophil count decreased [Unknown]
  - Lymphocyte percentage decreased [Unknown]
  - Red blood cell sedimentation rate increased [Unknown]
  - Blood urea increased [Unknown]
